FAERS Safety Report 10846743 (Version 1)
Quarter: 2015Q1

REPORT INFORMATION
  Report Type: Spontaneous
  Country: US (occurrence: US)
  Receive Date: 20150220
  Receipt Date: 20150220
  Transmission Date: 20150721
  Serious: Yes (Other)
  Sender: FDA-Public Use
  Company Number: US-BAYER-2015-023356

PATIENT
  Age: 64 Year
  Sex: Female

DRUGS (5)
  1. CALCIUM W/VITAMIN D NOS [Concomitant]
     Active Substance: CALCIUM\VITAMIN D
  2. ASA [Concomitant]
     Active Substance: ASPIRIN
     Dosage: 81 MG, UNK
  3. AMLODIPINE [Concomitant]
     Active Substance: AMLODIPINE BESYLATE
     Dosage: 2.5 MG, UNK
  4. BETASERON [Suspect]
     Active Substance: INTERFERON BETA-1B
     Dosage: 025 MG, QOD
     Route: 058
  5. NIACIN. [Concomitant]
     Active Substance: NIACIN
     Dosage: 500 MG, UNK

REACTIONS (3)
  - Pulmonary thrombosis [Recovered/Resolved]
  - Nasopharyngitis [Recovered/Resolved]
  - Drug dose omission [Recovered/Resolved]

NARRATIVE: CASE EVENT DATE: 20130211
